FAERS Safety Report 20418728 (Version 2)
Quarter: 2022Q1

REPORT INFORMATION
  Report Type: Spontaneous
  Country: PT (occurrence: PT)
  Receive Date: 20220202
  Receipt Date: 20220204
  Transmission Date: 20220423
  Serious: Yes (Other)
  Sender: FDA-Public Use
  Company Number: PT-009507513-2112PRT001493

PATIENT
  Age: 72 Year
  Sex: Male

DRUGS (4)
  1. STEGLATRO [Suspect]
     Active Substance: ERTUGLIFLOZIN PIDOLATE
     Indication: Diabetes mellitus
     Dosage: 5 MILLIGRAM
     Route: 048
     Dates: start: 202110
  2. FLUOXETINE [Concomitant]
     Active Substance: FLUOXETINE HYDROCHLORIDE
     Indication: Depression
  3. FENOFIBRATE [Concomitant]
     Active Substance: FENOFIBRATE
     Indication: Lipid metabolism disorder
  4. GLICLAZIDE [Concomitant]
     Active Substance: GLICLAZIDE
     Indication: Prophylaxis

REACTIONS (4)
  - Femur fracture [Unknown]
  - Weight decreased [Unknown]
  - Oropharyngeal pain [Unknown]
  - Fall [Unknown]

NARRATIVE: CASE EVENT DATE: 20210101
